FAERS Safety Report 6610675-4 (Version None)
Quarter: 2010Q1

REPORT INFORMATION
  Report Type: 
  Country: None (occurrence: None)
  Receive Date: 20100302
  Receipt Date: 20100301
  Transmission Date: 20100710
  Serious: No
  Sender: FDA-Public Use
  Company Number: A0846725A

PATIENT
  Age: 18 Year
  Sex: Female

DRUGS (2)
  1. LAMICTAL [Suspect]
     Dosage: 200MG UNKNOWN
     Route: 048
  2. WELLBUTRIN [Concomitant]
     Route: 048

REACTIONS (2)
  - ANXIETY [None]
  - DRUG SCREEN FALSE POSITIVE [None]
